FAERS Safety Report 18804743 (Version 1)
Quarter: 2021Q1

REPORT INFORMATION
  Report Type: Spontaneous
  Country: US (occurrence: US)
  Receive Date: 20210128
  Receipt Date: 20210128
  Transmission Date: 20210419
  Serious: Yes (Life-Threatening, Hospitalization)
  Sender: FDA-Public Use
  Company Number: US-TEVA-2021-US-1872051

PATIENT
  Age: 50 Year
  Sex: Female

DRUGS (2)
  1. ADENOSINE. [Suspect]
     Active Substance: ADENOSINE
     Indication: SUPRAVENTRICULAR TACHYCARDIA
     Route: 042
  2. AMFETAMINE [Suspect]
     Active Substance: AMPHETAMINE
     Indication: PRODUCT USED FOR UNKNOWN INDICATION
     Route: 065

REACTIONS (9)
  - Chest pain [Unknown]
  - Pulmonary oedema [Unknown]
  - Respiratory failure [Unknown]
  - Toxicity to various agents [Unknown]
  - Supraventricular tachycardia [Recovering/Resolving]
  - Hypertension [Unknown]
  - Drug ineffective [Unknown]
  - Nausea [Unknown]
  - Vomiting [Unknown]
